FAERS Safety Report 16072571 (Version 1)
Quarter: 2019Q1

REPORT INFORMATION
  Report Type: Report from Study
  Country: US (occurrence: US)
  Receive Date: 20190314
  Receipt Date: 20190314
  Transmission Date: 20190418
  Serious: Yes (Hospitalization)
  Sender: FDA-Public Use
  Company Number: US-ASTRAZENECA-2019SE17347

PATIENT
  Age: 23720 Day
  Sex: Female

DRUGS (8)
  1. CLOBETASOL [Concomitant]
     Active Substance: CLOBETASOL
  2. TRAMADOL. [Concomitant]
     Active Substance: TRAMADOL
  3. IMMUNOTHERAPY [Concomitant]
  4. ADVAIR HFA [Concomitant]
     Active Substance: FLUTICASONE PROPIONATE\SALMETEROL XINAFOATE
  5. TAGRISSO [Suspect]
     Active Substance: OSIMERTINIB
     Indication: LUNG CARCINOMA CELL TYPE UNSPECIFIED STAGE 0
     Route: 048
     Dates: start: 20190122
  6. ASMANEX [Concomitant]
     Active Substance: MOMETASONE FUROATE
  7. SYNTHROID [Concomitant]
     Active Substance: LEVOTHYROXINE SODIUM
  8. GINSENG [Concomitant]
     Active Substance: ASIAN GINSENG

REACTIONS (6)
  - Liver function test increased [Recovered/Resolved]
  - Malaise [Unknown]
  - Fatigue [Unknown]
  - Nausea [Recovered/Resolved]
  - Abdominal discomfort [Unknown]
  - Dyspnoea [Unknown]

NARRATIVE: CASE EVENT DATE: 20190123
